FAERS Safety Report 6019936-3 (Version None)
Quarter: 2008Q4

REPORT INFORMATION
  Report Type: 
  Country: None (occurrence: None)
  Receive Date: 20081223
  Receipt Date: 20081211
  Transmission Date: 20090506
  Serious: Yes (Other)
  Sender: FDA-Public Use
  Company Number: 235317J08USA

PATIENT
  Age: 48 Year
  Sex: Female
  Weight: 68 kg

DRUGS (8)
  1. REBIF [Suspect]
     Indication: MULTIPLE SCLEROSIS
     Dosage: 44 MCG, 3 IN 1 WEEKS, SUBCUTANEOUS
     Route: 058
     Dates: start: 20070807
  2. SEROQUEL (QUEITAPINE) [Concomitant]
  3. WELLBUTRIN SR [Concomitant]
  4. CELEXA [Concomitant]
  5. PROPANOLOL HYDROCHLORIDE ER (PROPANOLOL HYDROCHLORIDE) [Concomitant]
  6. TAMOXIFEN CITRATE [Concomitant]
  7. PROTONIX [Concomitant]
  8. BENICAR [Concomitant]

REACTIONS (3)
  - RETINAL EXUDATES [None]
  - RETINOPATHY [None]
  - VISUAL FIELD DEFECT [None]
